FAERS Safety Report 10336148 (Version 1)
Quarter: 2014Q3

REPORT INFORMATION
  Report Type: Spontaneous
  Country: US (occurrence: US)
  Receive Date: 20140723
  Receipt Date: 20140723
  Transmission Date: 20150326
  Serious: No
  Sender: FDA-Public Use
  Company Number: US-BRISTOL-MYERS SQUIBB COMPANY-19839869

PATIENT
  Age: 68 Year
  Sex: Male

DRUGS (1)
  1. WARFARIN SODIUM. [Suspect]
     Active Substance: WARFARIN SODIUM
     Dosage: JUNE 2009 TO JULY 2012, AGAIN STARTED ON 24 SEP2013?11NOV2013:2.5MG QD
     Dates: start: 200906

REACTIONS (1)
  - Haemorrhage [Unknown]
